FAERS Safety Report 19208921 (Version 2)
Quarter: 2021Q2

REPORT INFORMATION
  Report Type: Spontaneous
  Country: US (occurrence: US)
  Receive Date: 20210503
  Receipt Date: 20210628
  Transmission Date: 20210717
  Serious: Yes (Hospitalization, Other)
  Sender: FDA-Public Use
  Company Number: US-ELI_LILLY_AND_COMPANY-US202104013370

PATIENT
  Age: 59 Year
  Sex: Female
  Weight: 106.58 kg

DRUGS (1)
  1. BAMLANIVIMAB 700MG [Suspect]
     Active Substance: BAMLANIVIMAB
     Indication: COVID-19
     Dosage: 700 MG, SINGLE
     Route: 042
     Dates: start: 20210415, end: 20210415

REACTIONS (4)
  - Respiratory failure [Unknown]
  - COVID-19 pneumonia [Unknown]
  - Leukocytosis [Unknown]
  - COVID-19 [Unknown]
